FAERS Safety Report 18300174 (Version 1)
Quarter: 2020Q3

REPORT INFORMATION
  Report Type: Spontaneous
  Country: TW (occurrence: TW)
  Receive Date: 20200923
  Receipt Date: 20200923
  Transmission Date: 20201103
  Serious: Yes (Other)
  Sender: FDA-Public Use
  Company Number: TW-ASTELLAS-2020US032731

PATIENT
  Age: 61 Year
  Sex: Female
  Weight: 52 kg

DRUGS (8)
  1. PROGRAF [Suspect]
     Active Substance: TACROLIMUS
     Indication: RENAL TRANSPLANT
     Route: 065
     Dates: start: 20181006, end: 201810
  2. PROGRAF [Suspect]
     Active Substance: TACROLIMUS
     Route: 065
     Dates: start: 201810, end: 201810
  3. PROGRAF [Suspect]
     Active Substance: TACROLIMUS
     Dosage: 3MG/2.5 MG, UNKNOWN FREQ.
     Route: 065
     Dates: start: 201810, end: 201810
  4. CELLCEPT [Concomitant]
     Active Substance: MYCOPHENOLATE MOFETIL\MYCOPHENOLATE MOFETIL HYDROCHLORIDE
     Dosage: 2#/2#
     Route: 065
     Dates: start: 201810, end: 201810
  5. CELLCEPT [Concomitant]
     Active Substance: MYCOPHENOLATE MOFETIL\MYCOPHENOLATE MOFETIL HYDROCHLORIDE
     Dosage: 3#/2#
     Route: 065
     Dates: start: 201810, end: 201810
  6. ATG [ANTITHYMOCYTE IMMUNOGLOBULIN] [Concomitant]
     Active Substance: LAPINE T-LYMPHOCYTE IMMUNE GLOBULIN
     Indication: RENAL TRANSPLANT
     Dosage: UNK UNK, UNKNOWN FREQ.
     Route: 065
  7. PROGRAF [Suspect]
     Active Substance: TACROLIMUS
     Dosage: 3 MG/2.5MG, UNKNOWN FREQ.
     Route: 065
     Dates: start: 201810, end: 201810
  8. CELLCEPT [Concomitant]
     Active Substance: MYCOPHENOLATE MOFETIL\MYCOPHENOLATE MOFETIL HYDROCHLORIDE
     Indication: RENAL TRANSPLANT
     Dosage: 3 #, TWICE DAILY
     Route: 065
     Dates: start: 20181006, end: 201810

REACTIONS (4)
  - Klebsiella infection [Unknown]
  - Urinary tract infection bacterial [Unknown]
  - Renal tubular injury [Unknown]
  - Transplant rejection [Unknown]

NARRATIVE: CASE EVENT DATE: 20181011
